FAERS Safety Report 7036013-3 (Version None)
Quarter: 2010Q4

REPORT INFORMATION
  Report Type: 
  Country: None (occurrence: None)
  Receive Date: 20101008
  Receipt Date: 20101006
  Transmission Date: 20110411
  Serious: Yes (Other)
  Sender: FDA-Public Use
  Company Number: US-MYLANLABS-2010S1015570

PATIENT
  Age: 16 Year
  Sex: Male
  Weight: 74.84 kg

DRUGS (2)
  1. AMNESTEEM [Suspect]
     Indication: ACNE CYSTIC
     Route: 048
     Dates: start: 20100818
  2. AMNESTEEM [Suspect]
     Dates: start: 20100923

REACTIONS (8)
  - BLOOD ALKALINE PHOSPHATASE INCREASED [None]
  - DEHYDRATION [None]
  - DIZZINESS [None]
  - MIGRAINE [None]
  - NAUSEA [None]
  - SPECIFIC GRAVITY URINE INCREASED [None]
  - VOMITING [None]
  - WHITE BLOOD CELL COUNT INCREASED [None]
